FAERS Safety Report 16419375 (Version 4)
Quarter: 2019Q2

REPORT INFORMATION
  Report Type: Report from Study
  Country: IT (occurrence: IT)
  Receive Date: 20190612
  Receipt Date: 20190628
  Transmission Date: 20190711
  Serious: Yes (Hospitalization)
  Sender: FDA-Public Use
  Company Number: IT-ROCHE-2334028

PATIENT
  Age: 42 Year
  Sex: Female
  Weight: 48 kg

DRUGS (5)
  1. TRASTUZUMAB. [Suspect]
     Active Substance: TRASTUZUMAB
     Indication: INVASIVE BREAST CARCINOMA
     Dosage: LAST DOSE 24/MAY/2019: 290 MG
     Route: 042
     Dates: start: 20190503
  2. CARBOPLATIN. [Suspect]
     Active Substance: CARBOPLATIN
     Indication: INVASIVE BREAST CARCINOMA
     Dosage: AUC 2?LAST DOSE ON 31/MAY/2019: 170 MG
     Route: 042
     Dates: start: 20190503
  3. ATEZOLIZUMAB. [Suspect]
     Active Substance: ATEZOLIZUMAB
     Indication: INVASIVE BREAST CARCINOMA
     Dosage: LAST DOSE ON 24/MAY/2019
     Route: 042
     Dates: start: 20190226
  4. PERTUZUMAB. [Suspect]
     Active Substance: PERTUZUMAB
     Indication: INVASIVE BREAST CARCINOMA
     Dosage: 840 MG LOADING DOSE, LATER 420 MG LAST DOSE ON 24/MAY/2019
     Route: 042
     Dates: start: 20190503
  5. PACLITAXEL. [Suspect]
     Active Substance: PACLITAXEL
     Indication: INVASIVE BREAST CARCINOMA
     Dosage: LAST DOSE 31/MAY/2019: 130 MG
     Route: 042
     Dates: start: 20190503

REACTIONS (1)
  - Pericardial effusion [Not Recovered/Not Resolved]

NARRATIVE: CASE EVENT DATE: 20190605
